FAERS Safety Report 5307310-4 (Version None)
Quarter: 2007Q2

REPORT INFORMATION
  Report Type: 
  Country: None (occurrence: None)
  Receive Date: 20070425
  Receipt Date: 20070413
  Transmission Date: 20071010
  Serious: Yes (Other)
  Sender: FDA-Public Use
  Company Number: US-ROCHE-483214

PATIENT
  Age: 56 Year
  Sex: Male

DRUGS (9)
  1. PEGASYS [Suspect]
     Route: 065
     Dates: start: 20061015
  2. PEGASYS [Suspect]
     Route: 065
     Dates: start: 20060809
  3. COPEGUS [Suspect]
     Route: 065
     Dates: start: 20061015
  4. COPEGUS [Suspect]
     Route: 065
     Dates: start: 20060809
  5. TEMAZEPAM [Concomitant]
     Indication: INSOMNIA
  6. RISPERDAL [Concomitant]
     Dosage: PATIENT TOOK RISPERDAL EVERYDAY.
  7. CITALOPRAM HYDROBROMIDE [Concomitant]
     Indication: DEPRESSION
  8. ALEVE [Concomitant]
  9. SINGULAIR [Concomitant]
     Indication: ASTHMA

REACTIONS (11)
  - ASTHMA [None]
  - DEPRESSION [None]
  - HEPATIC PAIN [None]
  - HEPATITIS [None]
  - ILL-DEFINED DISORDER [None]
  - MUSCLE SPASMS [None]
  - MYALGIA [None]
  - NASAL CONGESTION [None]
  - PLATELET COUNT DECREASED [None]
  - RESPIRATORY TRACT CONGESTION [None]
  - STOMACH DISCOMFORT [None]
